FAERS Safety Report 15150367 (Version 3)
Quarter: 2018Q3

REPORT INFORMATION
  Report Type: Spontaneous
  Country: CA (occurrence: CA)
  Receive Date: 20180716
  Receipt Date: 20180830
  Transmission Date: 20181010
  Serious: Yes (Other)
  Sender: FDA-Public Use
  Company Number: CA-CELLTRION INC.-2018CA020000

PATIENT

DRUGS (12)
  1. PREDNISONE. [Concomitant]
     Active Substance: PREDNISONE
     Dosage: 28 MG, TAPERING DOSE CURRENTLY
  2. SOLU?MEDROL [Concomitant]
     Active Substance: METHYLPREDNISOLONE SODIUM SUCCINATE
     Dosage: UNK
     Dates: start: 2015
  3. INFLECTRA [Suspect]
     Active Substance: INFLIXIMAB-DYYB
     Dosage: 505 MG, CYCLIC (EVERY0,2,6 WEEKS THEN EVERY 8 WEEKS)
     Route: 042
     Dates: start: 20180507
  4. INFLECTRA [Suspect]
     Active Substance: INFLIXIMAB-DYYB
     Dosage: 505  ,CYCLIC (EVERY 0,2,6 WEEKS THEN EVERY 8 WEEKS)
     Dates: start: 20180604
  5. INFLECTRA [Suspect]
     Active Substance: INFLIXIMAB-DYYB
     Indication: CROHN^S DISEASE
     Dosage: 505 MG, CYCLIC (EVERY0,2,6 WEEKS THEN EVERY 8 WEEKS)
     Route: 042
     Dates: start: 20180423
  6. IBUPROFEN. [Concomitant]
     Active Substance: IBUPROFEN
  7. HUMIRA [Concomitant]
     Active Substance: ADALIMUMAB
     Dosage: 40 MG, 1/WEEK
     Dates: start: 2013
  8. IMURAN [Concomitant]
     Active Substance: AZATHIOPRINE
     Dosage: 50 MG, DAILY  (OD) TEST DOSE
     Route: 048
     Dates: start: 2012
  9. INFLECTRA [Suspect]
     Active Substance: INFLIXIMAB-DYYB
     Dosage: 505 MG, CYCLIC (EVERY 0,2,6 WEEKS THEN EVERY 8 WEEKS)
     Route: 042
     Dates: start: 20180730
  10. AMLODIPINE [Concomitant]
     Active Substance: AMLODIPINE BESYLATE
     Dosage: 5 MG, DAILY
  11. METRONIDAZOLE. [Concomitant]
     Active Substance: METRONIDAZOLE
     Dosage: 500 MG, BID
  12. METHYLPREDNISOLONE. [Concomitant]
     Active Substance: METHYLPREDNISOLONE
     Route: 042

REACTIONS (21)
  - Frequent bowel movements [Unknown]
  - Drug effect incomplete [Not Recovered/Not Resolved]
  - Abdominal pain lower [Unknown]
  - Intestinal stenosis [Unknown]
  - Gastrointestinal pain [Unknown]
  - Abdominal distension [Unknown]
  - Intestinal dilatation [Unknown]
  - Constipation [Recovered/Resolved]
  - Dehydration [Recovering/Resolving]
  - Lymphopenia [Recovered/Resolved]
  - Diarrhoea [Unknown]
  - Blood pressure fluctuation [Unknown]
  - Small intestinal obstruction [Unknown]
  - Loss of personal independence in daily activities [Unknown]
  - Hypophagia [Not Recovered/Not Resolved]
  - Abdominal tenderness [Unknown]
  - Condition aggravated [Unknown]
  - Malaise [Recovering/Resolving]
  - Abdominal pain [Unknown]
  - Chromaturia [Not Recovered/Not Resolved]
  - Epigastric discomfort [Recovered/Resolved]

NARRATIVE: CASE EVENT DATE: 20180423
